FAERS Safety Report 24533638 (Version 1)
Quarter: 2024Q4

REPORT INFORMATION
  Report Type: Spontaneous
  Country: CN (occurrence: CN)
  Receive Date: 20241022
  Receipt Date: 20241022
  Transmission Date: 20250115
  Serious: Yes (Other)
  Sender: TEVA
  Company Number: CN-TEVA-VS-3254415

PATIENT
  Age: 49 Year
  Sex: Female

DRUGS (8)
  1. ACITRETIN [Suspect]
     Active Substance: ACITRETIN
     Indication: Generalised pustular psoriasis
     Route: 048
  2. ACITRETIN [Suspect]
     Active Substance: ACITRETIN
     Indication: Generalised pustular psoriasis
     Route: 048
  3. SECUKINUMAB [Concomitant]
     Active Substance: SECUKINUMAB
     Indication: Ankylosing spondylitis
     Dosage: MAINTENANCE DOSE STARTED AT WEEK 8
     Route: 058
  4. SECUKINUMAB [Concomitant]
     Active Substance: SECUKINUMAB
     Indication: Ankylosing spondylitis
     Dosage: AT WEEKS 2
     Route: 058
  5. SECUKINUMAB [Concomitant]
     Active Substance: SECUKINUMAB
     Indication: Ankylosing spondylitis
     Dosage: AT WEEKS 0
     Route: 058
  6. SECUKINUMAB [Concomitant]
     Active Substance: SECUKINUMAB
     Indication: Ankylosing spondylitis
     Dosage: DOSE REDUCED
     Route: 058
  7. SECUKINUMAB [Concomitant]
     Active Substance: SECUKINUMAB
     Indication: Ankylosing spondylitis
     Dosage: AT WEEKS 4
     Route: 058
  8. SECUKINUMAB [Concomitant]
     Active Substance: SECUKINUMAB
     Indication: Ankylosing spondylitis
     Dosage: AT WEEKS 3
     Route: 058

REACTIONS (4)
  - Hyperlipidaemia [Recovered/Resolved]
  - Chapped lips [Unknown]
  - Nasal dryness [Unknown]
  - Dry eye [Unknown]
